FAERS Safety Report 19749043 (Version 1)
Quarter: 2021Q3

REPORT INFORMATION
  Report Type: Spontaneous
  Country: US (occurrence: US)
  Receive Date: 20210824
  Receipt Date: 20210824
  Transmission Date: 20211014
  Serious: Yes (Hospitalization)
  Sender: FDA-Public Use
  Company Number: None

PATIENT
  Sex: Male
  Weight: 73.2 kg

DRUGS (3)
  1. CYTARABINE. [Suspect]
     Active Substance: CYTARABINE
  2. ACALABRUTINIB. [Concomitant]
     Active Substance: ACALABRUTINIB
  3. RITUXIMAB (MOAB C2B8 ANTI CD20, CHIMERIC) [Concomitant]
     Active Substance: RITUXIMAB

REACTIONS (4)
  - Platelet count decreased [None]
  - Cough [None]
  - Infection [None]
  - Febrile neutropenia [None]

NARRATIVE: CASE EVENT DATE: 20210814
